FAERS Safety Report 6882745-7 (Version None)
Quarter: 2010Q3

REPORT INFORMATION
  Report Type: 
  Country: None (occurrence: None)
  Receive Date: 20100729
  Receipt Date: 20100714
  Transmission Date: 20110219
  Serious: Yes (Hospitalization)
  Sender: FDA-Public Use
  Company Number: DE-ROCHE-716074

PATIENT
  Sex: Female
  Weight: 88 kg

DRUGS (1)
  1. TRASTUZUMAB [Suspect]
     Indication: BREAST CANCER
     Route: 042
     Dates: start: 20090526, end: 20090527

REACTIONS (1)
  - DRUG THERAPEUTIC INCOMPATIBILITY [None]
